FAERS Safety Report 9173377 (Version 1)
Quarter: 2013Q1

REPORT INFORMATION
  Report Type: Spontaneous
  Country: GB (occurrence: None)
  Receive Date: 20130314
  Receipt Date: 20130314
  Transmission Date: 20140127
  Serious: Yes (Other)
  Sender: FDA-Public Use
  Company Number: AUR-APL-2013-02033

PATIENT
  Age: 34 Year
  Sex: Male
  Weight: 50.8 kg

DRUGS (1)
  1. LAMOTRIGINE (LAMOTRIGINE) [Suspect]
     Indication: EPILEPSY
     Route: 048
     Dates: start: 20130101

REACTIONS (4)
  - Insomnia [None]
  - Ataxia [None]
  - Mood swings [None]
  - Activities of daily living impaired [None]
